FAERS Safety Report 4388453-9 (Version None)
Quarter: 2004Q2

REPORT INFORMATION
  Report Type: 
  Country: None (occurrence: None)
  Receive Date: 20040625
  Receipt Date: 20040609
  Transmission Date: 20050107
  Serious: Yes (Hospitalization)
  Sender: FDA-Public Use
  Company Number: 6009201

PATIENT
  Age: 80 Year
  Sex: Male

DRUGS (3)
  1. BISOPROLOL (CHF) (TABLETS) (BISOPROLOL) [Suspect]
     Indication: CARDIAC FAILURE CONGESTIVE
     Dosage: 7,5 MG
     Route: 048
     Dates: start: 20040308
  2. FUROSEMIDE [Concomitant]
  3. KALIUM CHLORIDE (POTASSIUM CHLORIDE) [Concomitant]

REACTIONS (5)
  - ACUTE CORONARY SYNDROME [None]
  - CARDIAC FAILURE [None]
  - CONDITION AGGRAVATED [None]
  - LUNG CREPITATION [None]
  - VENTRICULAR HYPERTROPHY [None]
